FAERS Safety Report 19706023 (Version 1)
Quarter: 2021Q3

REPORT INFORMATION
  Report Type: Spontaneous
  Country: DE (occurrence: DE)
  Receive Date: 20210817
  Receipt Date: 20210817
  Transmission Date: 20211014
  Serious: Yes (Hospitalization)
  Sender: FDA-Public Use
  Company Number: DE-DRREDDYS-SPO/GER/21/0138725

PATIENT
  Age: 78 Year
  Sex: Female
  Weight: 63 kg

DRUGS (7)
  1. PREGABALIN. [Suspect]
     Active Substance: PREGABALIN
     Indication: PRODUCT USED FOR UNKNOWN INDICATION
  2. ELIQUIS [Suspect]
     Active Substance: APIXABAN
     Indication: PRODUCT USED FOR UNKNOWN INDICATION
  3. COLECALCIFEROL (VITAMIN D) [Concomitant]
     Active Substance: CHOLECALCIFEROL
     Indication: PRODUCT USED FOR UNKNOWN INDICATION
     Dosage: ACCORDING TO THE SCHEME
  4. PANTOPRAZOLE [Concomitant]
     Active Substance: PANTOPRAZOLE
     Indication: PRODUCT USED FOR UNKNOWN INDICATION
  5. TORASEMID [Suspect]
     Active Substance: TORSEMIDE
     Indication: PRODUCT USED FOR UNKNOWN INDICATION
  6. ESTRIOL [Concomitant]
     Active Substance: ESTRIOL
     Indication: PRODUCT USED FOR UNKNOWN INDICATION
     Dosage: ACCORDING TO SCHEDULE
  7. METAMIZOL [Suspect]
     Active Substance: METAMIZOLE SODIUM
     Indication: PRODUCT USED FOR UNKNOWN INDICATION

REACTIONS (10)
  - Dyspnoea [Unknown]
  - General physical health deterioration [Unknown]
  - Hypothermia [Unknown]
  - Decreased appetite [Unknown]
  - Thirst decreased [Unknown]
  - Hypotension [Unknown]
  - Dysphagia [Unknown]
  - Haematuria [Unknown]
  - Tachypnoea [Unknown]
  - Dysuria [Unknown]
